FAERS Safety Report 9772964 (Version 1)
Quarter: 2013Q4

REPORT INFORMATION
  Report Type: Spontaneous
  Country: CH (occurrence: None)
  Receive Date: 20131217
  Receipt Date: 20131217
  Transmission Date: 20140711
  Serious: Yes (Other)
  Sender: FDA-Public Use
  Company Number: 20130702

PATIENT
  Age: 23 Year
  Sex: Female
  Weight: 86 kg

DRUGS (2)
  1. FERINJECT [Suspect]
     Indication: REFRACTORY CYTOPENIA WITH UNILINEAGE DYSPLASIA
     Route: 042
     Dates: start: 20130530, end: 20130530
  2. DOLIPRANE (PARACETAMOL) [Concomitant]

REACTIONS (8)
  - Back pain [None]
  - Chest pain [None]
  - Chest pain [None]
  - Wrong technique in drug usage process [None]
  - Dyspnoea [None]
  - Anxiety [None]
  - Tachypnoea [None]
  - Exposure during pregnancy [None]
